FAERS Safety Report 10693331 (Version 4)
Quarter: 2015Q1

REPORT INFORMATION
  Report Type: Spontaneous
  Country: US (occurrence: US)
  Receive Date: 20150106
  Receipt Date: 20150203
  Transmission Date: 20150720
  Serious: Yes (Hospitalization, Other)
  Sender: FDA-Public Use
  Company Number: US-LUNDBECK-DKLU1107241

PATIENT
  Age: 47 Year
  Sex: Male

DRUGS (13)
  1. ONFI [Suspect]
     Active Substance: CLOBAZAM
     Route: 065
     Dates: start: 201412
  2. ONFI [Suspect]
     Active Substance: CLOBAZAM
     Route: 065
     Dates: start: 20141124
  3. ONFI [Suspect]
     Active Substance: CLOBAZAM
     Route: 065
     Dates: start: 20140821, end: 20141114
  4. ONFI [Suspect]
     Active Substance: CLOBAZAM
     Route: 065
  5. DILANTIN [Concomitant]
     Active Substance: PHENYTOIN
     Indication: PRODUCT USED FOR UNKNOWN INDICATION
  6. ONFI [Suspect]
     Active Substance: CLOBAZAM
     Route: 065
     Dates: start: 20140821, end: 20141114
  7. KEPPRA [Concomitant]
     Active Substance: LEVETIRACETAM
     Indication: PRODUCT USED FOR UNKNOWN INDICATION
  8. UNSPECIFIED MULTIPLE SCLEROSIS MEDICATIONS [Concomitant]
     Indication: MULTIPLE SCLEROSIS
  9. ONFI [Suspect]
     Active Substance: CLOBAZAM
     Indication: EPILEPSY
     Route: 048
     Dates: start: 20140813, end: 2014
  10. ONFI [Suspect]
     Active Substance: CLOBAZAM
     Indication: SEIZURE
     Route: 048
     Dates: start: 2014
  11. ONFI [Suspect]
     Active Substance: CLOBAZAM
     Route: 048
     Dates: start: 201408
  12. ATIVAN [Concomitant]
     Active Substance: LORAZEPAM
     Indication: SEIZURE
  13. LAMICTAL [Concomitant]
     Active Substance: LAMOTRIGINE
     Indication: PRODUCT USED FOR UNKNOWN INDICATION

REACTIONS (12)
  - Abasia [Recovering/Resolving]
  - Peripheral swelling [Not Recovered/Not Resolved]
  - Asthenia [Unknown]
  - Gait disturbance [Unknown]
  - Somnolence [Unknown]
  - Lethargy [Unknown]
  - Partial seizures [Recovered/Resolved]
  - Aspiration [Unknown]
  - Fatigue [Unknown]
  - Pneumonia [Recovering/Resolving]
  - Drug withdrawal convulsions [Recovered/Resolved]
  - Cough [Not Recovered/Not Resolved]

NARRATIVE: CASE EVENT DATE: 20141124
